FAERS Safety Report 7942441-1 (Version None)
Quarter: 2011Q4

REPORT INFORMATION
  Report Type: 
  Country: None (occurrence: None)
  Receive Date: 20111128
  Receipt Date: 20111118
  Transmission Date: 20120403
  Serious: Yes (Death, Hospitalization)
  Sender: FDA-Public Use
  Company Number: US-GLAXOSMITHKLINE-A0871878A

PATIENT
  Age: 69 Year
  Sex: Female
  Weight: 93.2 kg

DRUGS (7)
  1. AVANDIA [Suspect]
     Indication: DIABETES MELLITUS
     Dosage: 8MG PER DAY
     Route: 048
     Dates: start: 20040501, end: 20060701
  2. LORAZEPAM [Concomitant]
  3. NORVASC [Concomitant]
  4. CLONIDINE [Concomitant]
  5. HYZAAR [Concomitant]
  6. ACIPHEX [Concomitant]
  7. GLUCOPHAGE [Concomitant]

REACTIONS (2)
  - MYOCARDIAL INFARCTION [None]
  - CORONARY ARTERY DISEASE [None]
